FAERS Safety Report 9420029 (Version 1)
Quarter: 2013Q3

REPORT INFORMATION
  Report Type: Spontaneous
  Country: FR (occurrence: FR)
  Receive Date: 20130725
  Receipt Date: 20130725
  Transmission Date: 20140515
  Serious: Yes (Death, Hospitalization, Other)
  Sender: FDA-Public Use
  Company Number: FR-ACTELION-A-CH2013-86175

PATIENT
  Age: 81 Year
  Sex: Female

DRUGS (3)
  1. TRACLEER [Suspect]
     Indication: PULMONARY HYPERTENSION
     Dosage: UNK
     Route: 048
     Dates: start: 2006, end: 201303
  2. REVATIO [Suspect]
     Dosage: UNK
     Dates: start: 2011, end: 201210
  3. ADCIRCA [Suspect]
     Dosage: UNK
     Dates: start: 201210

REACTIONS (7)
  - General physical health deterioration [Fatal]
  - Depression [Unknown]
  - Decreased appetite [Unknown]
  - Oedema peripheral [Unknown]
  - Thrombocytopenia [Unknown]
  - Neutropenia [Unknown]
  - Renal cancer [Unknown]
